FAERS Safety Report 4972263-5 (Version None)
Quarter: 2006Q2

REPORT INFORMATION
  Report Type: 
  Country: None (occurrence: None)
  Receive Date: 20060413
  Receipt Date: 20060406
  Transmission Date: 20061013
  Serious: Yes (Other)
  Sender: FDA-Public Use
  Company Number: US-BRISTOL-MYERS SQUIBB COMPANY-13339296

PATIENT
  Sex: Female

DRUGS (5)
  1. ERBITUX [Suspect]
     Route: 042
     Dates: start: 20060330, end: 20060330
  2. BENADRYL [Concomitant]
     Indication: PREMEDICATION
     Route: 042
     Dates: start: 20060330, end: 20060330
  3. ATIVAN [Concomitant]
  4. ZOFRAN [Concomitant]
  5. COMPAZINE [Concomitant]

REACTIONS (3)
  - CHILLS [None]
  - NAIL DISORDER [None]
  - SKIN DISCOLOURATION [None]
